FAERS Safety Report 5918279-3 (Version None)
Quarter: 2008Q4

REPORT INFORMATION
  Report Type: 
  Country: None (occurrence: None)
  Receive Date: 20081010
  Receipt Date: 20080927
  Transmission Date: 20090506
  Serious: Yes (Other)
  Sender: FDA-Public Use
  Company Number: CHPA2008US16407

PATIENT
  Sex: Female

DRUGS (1)
  1. 4 WAY METHOLATED NASAL SPRAY (NCH) PHENYLEPHRINE) NASAL SPRAY [Suspect]
     Indication: SINUS CONGESTION
     Dosage: NASAL
     Route: 045
     Dates: start: 20071201, end: 20080101

REACTIONS (3)
  - BRAIN OPERATION [None]
  - HYPERTENSION [None]
  - INTRACRANIAL ANEURYSM [None]
